FAERS Safety Report 4719520-5 (Version None)
Quarter: 2005Q3

REPORT INFORMATION
  Report Type: 
  Country: None (occurrence: None)
  Receive Date: 20050719
  Receipt Date: 20050719
  Transmission Date: 20060218
  Serious: Yes (Hospitalization)
  Sender: FDA-Public Use
  Company Number: None

PATIENT
  Age: 22 Year
  Sex: Male

DRUGS (11)
  1. DULOXETINE [Suspect]
     Dosage: 60MG PO QD
     Route: 048
  2. QUETIAPINE [Suspect]
     Dosage: 300MG  QHS
  3. CYMBALTA [Concomitant]
  4. METHADONE [Concomitant]
  5. SYNTHROID [Concomitant]
  6. OMEPRAZOLE [Concomitant]
  7. CLONAZEPAM [Concomitant]
  8. SEROQUEL [Concomitant]
  9. MOTRIN [Concomitant]
  10. FELXERIL [Concomitant]
  11. NEURONTIN [Concomitant]

REACTIONS (3)
  - HALLUCINATION [None]
  - MENINGITIS [None]
  - PYREXIA [None]
